FAERS Safety Report 7471675-8 (Version None)
Quarter: 2011Q1

REPORT INFORMATION
  Report Type: 
  Country: None (occurrence: None)
  Receive Date: 20110302
  Receipt Date: 20100730
  Transmission Date: 20110831
  Serious: Yes (Other)
  Sender: FDA-Public Use
  Company Number: 163-21880-10080076

PATIENT
  Age: 43 Year
  Sex: Female

DRUGS (2)
  1. REVLIMID [Suspect]
     Indication: MULTIPLE MYELOMA
     Dosage: 10 MG, 1 IN 1 D, PO; 10 MG, 1 IN 1 D, PO
     Route: 048
     Dates: start: 20091001
  2. REVLIMID [Suspect]
     Indication: MULTIPLE MYELOMA
     Dosage: 10 MG, 1 IN 1 D, PO; 10 MG, 1 IN 1 D, PO
     Route: 048
     Dates: start: 20081001, end: 20081201

REACTIONS (6)
  - BLOOD PRESSURE INCREASED [None]
  - ERYTHEMA [None]
  - HYPOAESTHESIA FACIAL [None]
  - HEADACHE [None]
  - HYPOSMIA [None]
  - BURNING SENSATION [None]
